FAERS Safety Report 9155369 (Version 1)
Quarter: 2013Q1

REPORT INFORMATION
  Report Type: Spontaneous
  Country: GB (occurrence: None)
  Receive Date: 20130206
  Receipt Date: 20130206
  Transmission Date: 20140127
  Serious: Yes (Disabling)
  Sender: FDA-Public Use
  Company Number: GER/UKI/13/0027773

PATIENT
  Age: 72 Year
  Sex: Female
  Weight: 62.3 kg

DRUGS (11)
  1. LEVOFLOXACIN (LEVOFLOXACIN) [Suspect]
     Indication: LOWER RESPIRATORY TRACT INFECTION BACTERIAL
     Route: 048
     Dates: start: 20130109, end: 20130115
  2. ADCAL D3(LEKOVITCA) [Concomitant]
  3. ALENDRONATE (ALENDRONAT SODIUM) [Concomitant]
  4. BENDROFLUMETHIAZIDE (BENDROFLUMETHIAZIDE) [Concomitant]
  5. DILTIAZEM [Concomitant]
  6. LANSOPRAZOLE (LANSOPRAZOLE) [Concomitant]
  7. LISINOPRIL (LISINOPRIL) [Concomitant]
  8. SALBUTAMOL (SALBUTAMOL) [Concomitant]
  9. SENNA (SENNA ALEXANDRINA) [Concomitant]
  10. SERETIDE (SERETIDE) [Concomitant]
  11. TIOTROPIUM (TIOTROPIUM) [Concomitant]

REACTIONS (7)
  - Tendonitis [None]
  - Joint swelling [None]
  - Arthralgia [None]
  - Joint stiffness [None]
  - Tenderness [None]
  - Erythema [None]
  - Fall [None]
